FAERS Safety Report 12109136 (Version 1)
Quarter: 2016Q1

REPORT INFORMATION
  Report Type: Spontaneous
  Country: US (occurrence: None)
  Receive Date: 20160222
  Receipt Date: 20160222
  Transmission Date: 20160526
  Serious: No
  Sender: FDA-Public Use
  Company Number: None

PATIENT
  Sex: Female

DRUGS (1)
  1. IRBESARTAN/HCTZ [Suspect]
     Active Substance: HYDROCHLOROTHIAZIDE\IRBESARTAN
     Route: 048

REACTIONS (5)
  - Blood pressure increased [None]
  - Eye swelling [None]
  - Product quality issue [None]
  - Urine output decreased [None]
  - Drug ineffective [None]
